FAERS Safety Report 7145970-6 (Version None)
Quarter: 2010Q4

REPORT INFORMATION
  Report Type: 
  Country: None (occurrence: None)
  Receive Date: 20101208
  Receipt Date: 20101018
  Transmission Date: 20110411
  Serious: No
  Sender: FDA-Public Use
  Company Number: US-ABBOTT-10P-163-0679150-00

PATIENT
  Sex: Female

DRUGS (1)
  1. ERYTHROMYCIN STEARATE [Suspect]
     Indication: BRONCHITIS
     Dates: start: 19950101, end: 19950101

REACTIONS (2)
  - ABDOMINAL PAIN UPPER [None]
  - ULCER [None]
